FAERS Safety Report 6677213-1 (Version None)
Quarter: 2010Q2

REPORT INFORMATION
  Report Type: 
  Country: None (occurrence: None)
  Receive Date: 20100412
  Receipt Date: 20100406
  Transmission Date: 20101027
  Serious: Yes (Hospitalization, Other)
  Sender: FDA-Public Use
  Company Number: US-BRISTOL-MYERS SQUIBB COMPANY-15051113

PATIENT
  Age: 76 Year
  Sex: Male
  Weight: 98 kg

DRUGS (5)
  1. COUMADIN [Suspect]
  2. HEPARIN SODIUM [Suspect]
  3. LOVENOX [Suspect]
     Indication: DEEP VEIN THROMBOSIS
     Dates: start: 20091123, end: 20091204
  4. LOVENOX [Suspect]
     Indication: PULMONARY EMBOLISM
     Dates: start: 20091123, end: 20091204
  5. PNEUMO 23 [Concomitant]

REACTIONS (8)
  - DRUG HYPERSENSITIVITY [None]
  - HAEMORRHAGE [None]
  - INJECTION SITE HAEMATOMA [None]
  - MUSCLE SPASMS [None]
  - OEDEMA PERIPHERAL [None]
  - PAIN IN EXTREMITY [None]
  - SKIN DISCOLOURATION [None]
  - VASCULAR RUPTURE [None]
